FAERS Safety Report 4680877-5 (Version None)
Quarter: 2005Q2

REPORT INFORMATION
  Report Type: 
  Country: None (occurrence: None)
  Receive Date: 20050601
  Receipt Date: 20050601
  Transmission Date: 20051028
  Serious: No
  Sender: FDA-Public Use
  Company Number: None

PATIENT
  Age: 58 Year
  Sex: Male
  Weight: 99.3377 kg

DRUGS (2)
  1. NORCO [Suspect]
     Indication: POST PROCEDURAL PAIN
     Dosage: 10/325 1-2 /4 HRS
     Dates: start: 20050323, end: 20050410
  2. NORCO [Suspect]
     Indication: SPINAL FUSION SURGERY
     Dosage: 10/325 1-2 /4 HRS
     Dates: start: 20050323, end: 20050410

REACTIONS (4)
  - ANXIETY [None]
  - FEAR [None]
  - FEELING ABNORMAL [None]
  - SLEEP DISORDER [None]
